FAERS Safety Report 7722659-3 (Version None)
Quarter: 2011Q3

REPORT INFORMATION
  Report Type: 
  Country: None (occurrence: None)
  Receive Date: 20110831
  Receipt Date: 20110822
  Transmission Date: 20111222
  Serious: Yes (Hospitalization)
  Sender: FDA-Public Use
  Company Number: FR-ASTRAZENECA-2011SE50794

PATIENT
  Age: 79 Year
  Sex: Female

DRUGS (14)
  1. CRESTOR [Suspect]
     Route: 048
     Dates: start: 20110425
  2. ACETAMINOPHEN [Suspect]
     Route: 048
     Dates: start: 20100224
  3. BONIVA [Concomitant]
  4. PAROXETINE HCL [Suspect]
     Route: 048
     Dates: start: 20110701
  5. EQUANIL [Concomitant]
  6. FORLAX [Suspect]
     Route: 048
     Dates: start: 20100224
  7. PANTOPRAZOLE SODIUM [Suspect]
     Route: 048
     Dates: start: 20100224
  8. BISOPROLOL FUMARATE [Suspect]
     Route: 048
     Dates: start: 20101024
  9. ESIDRIX [Concomitant]
  10. LEXOMIL [Concomitant]
  11. XANAX [Concomitant]
     Dosage: AS REQUIRED
  12. ASPIRIN [Suspect]
     Route: 048
     Dates: start: 20100723
  13. PAROXETINE HCL [Suspect]
     Route: 048
     Dates: start: 20100706, end: 20110701
  14. ZOLPIDEM [Suspect]
     Route: 048
     Dates: start: 20100224

REACTIONS (3)
  - PRURIGO [None]
  - PRURITUS [None]
  - ECZEMA [None]
